FAERS Safety Report 9422481 (Version 1)
Quarter: 2013Q3

REPORT INFORMATION
  Report Type: Spontaneous
  Country: JP (occurrence: JP)
  Receive Date: 20130726
  Receipt Date: 20130726
  Transmission Date: 20140515
  Serious: Yes (Hospitalization, Other)
  Sender: FDA-Public Use
  Company Number: JP-ELI_LILLY_AND_COMPANY-JP201304004277

PATIENT
  Age: 79 Year
  Sex: Female

DRUGS (2)
  1. FORTEO [Suspect]
     Dosage: UNK
     Route: 058
     Dates: start: 20130326
  2. BAYASPIRIN [Concomitant]
     Route: 048

REACTIONS (11)
  - Fall [Unknown]
  - Compression fracture [Unknown]
  - Dizziness [Unknown]
  - Injection site bruising [Unknown]
  - Injection site pain [Unknown]
  - Hypoaesthesia [Unknown]
  - Abdominal pain lower [Unknown]
  - Diarrhoea [Unknown]
  - Peripheral coldness [Unknown]
  - Musculoskeletal stiffness [Unknown]
  - Vascular insufficiency [Unknown]
